FAERS Safety Report 5273529-4 (Version None)
Quarter: 2007Q1

REPORT INFORMATION
  Report Type: 
  Country: None (occurrence: None)
  Receive Date: 20070323
  Receipt Date: 20070314
  Transmission Date: 20070707
  Serious: Yes (Hospitalization)
  Sender: FDA-Public Use
  Company Number: 2007UW02984

PATIENT
  Age: 42 Year
  Sex: Female
  Weight: 75 kg

DRUGS (4)
  1. MERREM [Suspect]
     Indication: CENTRAL NERVOUS SYSTEM ABSCESS
     Route: 042
     Dates: start: 20070114, end: 20070208
  2. VANCOMYCIN [Concomitant]
     Dosage: LEVEL DEPENDANT
     Route: 042
     Dates: start: 20070114
  3. FLUCONAZOLE [Concomitant]
     Route: 048
     Dates: start: 20070114
  4. FLUCONAZOLE [Concomitant]
     Route: 042

REACTIONS (3)
  - LOSS OF CONSCIOUSNESS [None]
  - NAUSEA [None]
  - VOMITING [None]
